FAERS Safety Report 19415351 (Version 1)
Quarter: 2021Q2

REPORT INFORMATION
  Report Type: Spontaneous
  Country: CN (occurrence: CN)
  Receive Date: 20210614
  Receipt Date: 20210614
  Transmission Date: 20210717
  Serious: Yes (Other)
  Sender: FDA-Public Use
  Company Number: CN-GLAXOSMITHKLINE-CNCH2021APC037734

PATIENT
  Age: 46 Year
  Sex: Male
  Weight: 55 kg

DRUGS (2)
  1. IBUPROFEN. [Suspect]
     Active Substance: IBUPROFEN
     Indication: RHEUMATOID ARTHRITIS
     Dosage: 0.3 G, BID
     Route: 048
     Dates: start: 20210530, end: 20210601
  2. AMOXICILLIN. [Suspect]
     Active Substance: AMOXICILLIN
     Indication: RHEUMATOID ARTHRITIS
     Dosage: 0.5 G, TID
     Route: 048
     Dates: start: 20210530, end: 20210601

REACTIONS (8)
  - Gastrointestinal haemorrhage [Recovering/Resolving]
  - Gastrointestinal sounds abnormal [Recovering/Resolving]
  - Haematochezia [Recovering/Resolving]
  - Abdominal pain [Recovering/Resolving]
  - Abdominal tenderness [Recovering/Resolving]
  - Electrocardiogram ST segment elevation [Recovering/Resolving]
  - Diarrhoea [Recovering/Resolving]
  - Yellow skin [Recovering/Resolving]

NARRATIVE: CASE EVENT DATE: 20210601
